FAERS Safety Report 9337274 (Version 2)
Quarter: 2021Q1

REPORT INFORMATION
  Report Type: Spontaneous
  Country: US (occurrence: US)
  Receive Date: 20130607
  Receipt Date: 20210309
  Transmission Date: 20210420
  Serious: Yes (Hospitalization)
  Sender: FDA-Public Use
  Company Number: US-PFIZER INC-2013171426

PATIENT
  Age: 72 Year
  Sex: Female

DRUGS (9)
  1. ALPRAZOLAM. [Suspect]
     Active Substance: ALPRAZOLAM
     Indication: ANXIETY
     Dosage: 1 MG, H.S.
     Route: 048
  2. DIGOXIN. [Interacting]
     Active Substance: DIGOXIN
     Dosage: 0.25 MG EVERY MORNING EXCEPT SUNDAY
     Route: 048
  3. ALPRAZOLAM. [Interacting]
     Active Substance: ALPRAZOLAM
     Indication: INSOMNIA
  4. DIGOXIN. [Interacting]
     Active Substance: DIGOXIN
     Dosage: 0.125 MG/DAY
     Route: 048
  5. FUROSEMIDE. [Concomitant]
     Active Substance: FUROSEMIDE
     Dosage: 40 MG, 2X/DAY
  6. POTASSIUM CHLORIDE. [Concomitant]
     Active Substance: POTASSIUM CHLORIDE
     Dosage: 20 MEQ, 2X/DAY
  7. MAPROTILINE [Concomitant]
     Active Substance: MAPROTILINE
     Indication: MAJOR DEPRESSION
     Dosage: 100 MG, H.S.
     Route: 048
  8. ISOSORBIDE DINITRATE. [Concomitant]
     Active Substance: ISOSORBIDE DINITRATE
     Dosage: 20 MG, 4X/DAY
     Route: 048
  9. ALPRAZOLAM. [Interacting]
     Active Substance: ALPRAZOLAM
     Indication: RESTLESSNESS

REACTIONS (6)
  - Drug interaction [Unknown]
  - Head discomfort [Recovered/Resolved]
  - Toxicity to various agents [Unknown]
  - Fatigue [Recovered/Resolved]
  - Drug therapeutic incompatibility [Unknown]
  - Abdominal discomfort [Recovered/Resolved]
